FAERS Safety Report 25041269 (Version 1)
Quarter: 2025Q1

REPORT INFORMATION
  Report Type: Spontaneous
  Country: US (occurrence: US)
  Receive Date: 20250305
  Receipt Date: 20250305
  Transmission Date: 20250409
  Serious: Yes (Other)
  Sender: BAYER HEALTHCARE LLC
  Company Number: US-BAYER-2025A029385

PATIENT
  Age: 46 Year
  Sex: Male

DRUGS (1)
  1. LOTRIMIN ANTIFUNGAL (MICONAZOLE NITRATE) [Suspect]
     Active Substance: MICONAZOLE NITRATE
     Dates: start: 1978, end: 1979

REACTIONS (1)
  - Mesothelioma [None]

NARRATIVE: CASE EVENT DATE: 20241008
